FAERS Safety Report 5247991-7 (Version None)
Quarter: 2007Q1

REPORT INFORMATION
  Report Type: 
  Country: None (occurrence: None)
  Receive Date: 20070226
  Receipt Date: 20070226
  Transmission Date: 20070707
  Serious: No
  Sender: FDA-Public Use
  Company Number: None

PATIENT
  Age: 52 Year
  Sex: Male
  Weight: 104.3273 kg

DRUGS (1)
  1. DEFENSOL D NONE NONE [Suspect]
     Indication: NASOPHARYNGITIS
     Dosage: 2 EVERY 4 OT 6 HRS PO
     Route: 048
     Dates: start: 20070223, end: 20070223

REACTIONS (2)
  - DOCUMENTED HYPERSENSITIVITY TO ADMINISTERED DRUG [None]
  - DRUG INEFFECTIVE [None]
